FAERS Safety Report 11690682 (Version 5)
Quarter: 2016Q1

REPORT INFORMATION
  Report Type: Spontaneous
  Country: AU (occurrence: AU)
  Receive Date: 20151102
  Receipt Date: 20160204
  Transmission Date: 20160525
  Serious: Yes (Hospitalization)
  Sender: FDA-Public Use
  Company Number: AU-009507513-1510AUS011871

PATIENT
  Sex: Female

DRUGS (3)
  1. SINEMET CR [Suspect]
     Active Substance: CARBIDOPA\LEVODOPA
     Dosage: UNK
     Route: 048
     Dates: start: 2015, end: 2015
  2. SINEMET CR [Suspect]
     Active Substance: CARBIDOPA\LEVODOPA
     Dosage: UNK
     Route: 048
     Dates: start: 2015
  3. SINEMET CR [Suspect]
     Active Substance: CARBIDOPA\LEVODOPA
     Dosage: UNK
     Route: 048
     Dates: end: 2015

REACTIONS (4)
  - Product physical issue [Unknown]
  - Infection [Unknown]
  - Drug ineffective [Unknown]
  - Hypokinesia [Unknown]

NARRATIVE: CASE EVENT DATE: 2015
